FAERS Safety Report 8572747-7 (Version None)
Quarter: 2012Q3

REPORT INFORMATION
  Report Type: 
  Country: None (occurrence: None)
  Receive Date: 20120806
  Receipt Date: 20120731
  Transmission Date: 20120928
  Serious: Yes (Hospitalization)
  Sender: FDA-Public Use
  Company Number: US-PFIZER INC-2012186122

PATIENT

DRUGS (3)
  1. PROCARDIA [Suspect]
     Dosage: UNK
  2. ZOLOFT [Suspect]
     Dosage: UNK
  3. ACCURETIC [Suspect]
     Dosage: UNK

REACTIONS (1)
  - ANXIETY [None]
